FAERS Safety Report 5831867-8 (Version None)
Quarter: 2008Q3

REPORT INFORMATION
  Report Type: 
  Country: None (occurrence: None)
  Receive Date: 20080729
  Receipt Date: 20080715
  Transmission Date: 20090109
  Serious: Yes (Hospitalization, Other)
  Sender: FDA-Public Use
  Company Number: ENTC2008-0196

PATIENT
  Age: 76 Year
  Sex: Female

DRUGS (2)
  1. STALEVO 100 [Suspect]
     Dosage: ONE TABLET 5 TIMES A DAY
  2. RASAGILINE [Suspect]
     Dosage: 1MG/DAY

REACTIONS (3)
  - PARKINSON'S DISEASE [None]
  - SEROTONIN SYNDROME [None]
  - THERAPEUTIC RESPONSE DECREASED [None]
